FAERS Safety Report 8013430-6 (Version None)
Quarter: 2011Q4

REPORT INFORMATION
  Report Type: 
  Country: None (occurrence: None)
  Receive Date: 20111229
  Receipt Date: 20111223
  Transmission Date: 20120403
  Serious: Yes (Other)
  Sender: FDA-Public Use
  Company Number: US-CUBIST-2011S1000937

PATIENT
  Age: 77 Year
  Sex: Male

DRUGS (4)
  1. CUBICIN [Suspect]
     Indication: PROMOTION OF WOUND HEALING
     Dosage: DOSE UNIT:U UNKNOWN
     Route: 065
  2. VANCOMYCIN HYCHLORIDE [Concomitant]
     Indication: PRODUCT USED FOR UNKNOWN INDICATION
     Route: 065
  3. ALL OTHER THERAPEUTIC PRODUCTS [Suspect]
     Indication: CARDIAC ABLATION
     Route: 048
  4. CLINDAMYCIN [Concomitant]
     Indication: PRODUCT USED FOR UNKNOWN INDICATION
     Route: 065

REACTIONS (1)
  - OESOPHAGEAL HAEMORRHAGE [None]
